FAERS Safety Report 5500410-5 (Version None)
Quarter: 2007Q4

REPORT INFORMATION
  Report Type: 
  Country: None (occurrence: None)
  Receive Date: 20071018
  Receipt Date: 20070502
  Transmission Date: 20080405
  Serious: Yes (Other)
  Sender: FDA-Public Use
  Company Number: 200736451

PATIENT
  Age: 67 Year
  Sex: Female

DRUGS (4)
  1. NEURONTIN [Suspect]
     Indication: NERVE COMPRESSION
  2. NEURONTIN [Suspect]
     Indication: NEUROPATHY
  3. NEURONTIN [Suspect]
     Indication: PAIN IN EXTREMITY
  4. ANTIDEPRESSANTS (ANTIDEPRESSANTS) [Concomitant]

REACTIONS (5)
  - AMNESIA [None]
  - CRYING [None]
  - DEPRESSION [None]
  - POLLAKIURIA [None]
  - SUICIDAL IDEATION [None]
